FAERS Safety Report 4451920-3 (Version None)
Quarter: 2004Q3

REPORT INFORMATION
  Report Type: 
  Country: None (occurrence: None)
  Receive Date: 20040917
  Receipt Date: 20040907
  Transmission Date: 20050211
  Serious: Yes (Hospitalization)
  Sender: FDA-Public Use
  Company Number: JP-JNJFOC-20040600666

PATIENT
  Sex: Male

DRUGS (28)
  1. REMICADE [Suspect]
     Indication: RHEUMATOID ARTHRITIS
     Route: 041
     Dates: start: 20040430
  2. SOLU-MEDROL [Suspect]
     Indication: RHEUMATOID ARTHRITIS
     Route: 042
     Dates: start: 20040328, end: 20040330
  3. PREDNISOLONE [Suspect]
     Route: 049
  4. PREDNISOLONE [Suspect]
     Route: 049
  5. PREDNISOLONE [Suspect]
     Route: 049
  6. PREDNISOLONE [Suspect]
     Route: 049
  7. PREDNISOLONE [Suspect]
     Route: 049
  8. PREDNISOLONE [Suspect]
     Route: 049
  9. PREDNISOLONE [Suspect]
     Indication: RHEUMATOID ARTHRITIS
     Route: 049
  10. ENDOXAN [Suspect]
     Indication: RHEUMATOID ARTHRITIS
     Route: 042
     Dates: start: 20040401, end: 20040401
  11. RHEUMATREX [Concomitant]
     Route: 049
  12. RHEUMATREX [Concomitant]
     Route: 049
  13. RHEUMATREX [Concomitant]
     Route: 049
  14. RHEUMATREX [Concomitant]
     Indication: RHEUMATOID ARTHRITIS
     Route: 049
  15. ANPLAG [Concomitant]
     Route: 049
  16. PROCYLIN [Concomitant]
  17. MUCOSTA [Concomitant]
  18. MUCOSTA [Concomitant]
  19. GASTER [Concomitant]
  20. BAKTAR [Concomitant]
  21. BAKTAR [Concomitant]
  22. ISCOTIN [Concomitant]
     Dates: start: 20040429
  23. ASPIRIN [Concomitant]
  24. ALLOID G [Concomitant]
     Dates: start: 20040403
  25. ASPIRIN [Concomitant]
     Route: 049
  26. CARVEDILOL [Concomitant]
     Route: 049
  27. RENIVACE [Concomitant]
     Route: 049
  28. LIPITOR [Concomitant]
     Route: 049

REACTIONS (22)
  - BLOOD ALKALINE PHOSPHATASE INCREASED [None]
  - BLOOD CREATININE DECREASED [None]
  - BLOOD LACTATE DEHYDROGENASE INCREASED [None]
  - CONDITION AGGRAVATED [None]
  - DRUG INTERACTION [None]
  - FUNGAL INFECTION [None]
  - GAMMA-GLUTAMYLTRANSFERASE INCREASED [None]
  - HAEMATOCRIT DECREASED [None]
  - HAEMOGLOBIN DECREASED [None]
  - HEART RATE DECREASED [None]
  - HEART RATE INCREASED [None]
  - IMMUNOSUPPRESSION [None]
  - INFECTED SKIN ULCER [None]
  - LEG AMPUTATION [None]
  - MYCOBACTERIUM KANSASII INFECTION [None]
  - PLATELET COUNT DECREASED [None]
  - PNEUMONIA [None]
  - PROTEIN TOTAL DECREASED [None]
  - PSEUDOMONAS INFECTION [None]
  - STREPTOCOCCAL INFECTION [None]
  - WHITE BLOOD CELL COUNT DECREASED [None]
  - WOUND INFECTION [None]
